FAERS Safety Report 26108396 (Version 1)
Quarter: 2025Q4

REPORT INFORMATION
  Report Type: Spontaneous
  Country: US (occurrence: US)
  Receive Date: 20251201
  Receipt Date: 20251201
  Transmission Date: 20260118
  Serious: Yes (Hospitalization, Other)
  Sender: PFIZER
  Company Number: US-PFIZER INC-202500231757

PATIENT
  Age: 31 Year
  Sex: Female

DRUGS (1)
  1. VELSIPITY [Suspect]
     Active Substance: ETRASIMOD ARGININE
     Indication: Colitis ulcerative
     Dosage: 2 MG, 1X/DAY, WIITH OR WITHOUT FOOD, SWALLOW TABLET WHOLE
     Route: 048

REACTIONS (8)
  - Colitis ulcerative [Unknown]
  - Condition aggravated [Unknown]
  - Asthenia [Unknown]
  - Decreased appetite [Unknown]
  - Swelling face [Unknown]
  - Back pain [Not Recovered/Not Resolved]
  - Condition aggravated [Not Recovered/Not Resolved]
  - Leukocytosis [Unknown]

NARRATIVE: CASE EVENT DATE: 20251101
